FAERS Safety Report 24220052 (Version 1)
Quarter: 2024Q3

REPORT INFORMATION
  Report Type: Spontaneous
  Country: GB (occurrence: GB)
  Receive Date: 20240817
  Receipt Date: 20240817
  Transmission Date: 20241017
  Serious: Yes (Other)
  Sender: TEVA
  Company Number: GB-MHRA-TPP6939755C9945216YC1722971583338

PATIENT
  Age: 74 Year
  Sex: Female
  Weight: 103 kg

DRUGS (8)
  1. ATORVASTATIN [Suspect]
     Active Substance: ATORVASTATIN
     Indication: Prophylaxis
     Route: 048
     Dates: start: 20240725
  2. PROPRANOLOL [Concomitant]
     Active Substance: PROPRANOLOL HYDROCHLORIDE
     Dates: start: 20231101
  3. OMEPRAZOLE [Concomitant]
     Active Substance: OMEPRAZOLE
     Dates: start: 20231101
  4. ESTRADIOL [Concomitant]
     Active Substance: ESTRADIOL
     Dosage: ONE PESSARY INSERTED NIGHTLY FOR 2 WEEKS THEN T...
     Dates: start: 20240325, end: 20240725
  5. MOVICOL [Concomitant]
     Active Substance: POLYETHYLENE GLYCOL 3350\POTASSIUM CHLORIDE\SODIUM BICARBONATE\SODIUM CHLORIDE
     Dosage: LEMON, LIME
     Dates: start: 20231101
  6. TOLTERODINE TARTRATE [Concomitant]
     Active Substance: TOLTERODINE TARTRATE
     Dates: start: 20240514, end: 20240611
  7. ALENDRONIC ACID [Concomitant]
     Active Substance: ALENDRONIC ACID
     Indication: Ill-defined disorder
     Dosage: ONE TO BE TAKEN ON THE SAME DAY EACH WEEK, DOSE FORM REPORTED: TPP YC - PLEASE RECLASSIFY
     Dates: start: 20231101
  8. PREDNISOLONE [Concomitant]
     Active Substance: PREDNISOLONE
     Dosage: USE AS DIRECTED, DOSE FORM REPORTED: TPP YC - PLEASE RECLASSIFY
     Dates: start: 20231101

REACTIONS (6)
  - Cataract [Unknown]
  - Headache [Unknown]
  - Burning sensation [Recovered/Resolved]
  - Dizziness [Recovered/Resolved]
  - Back pain [Recovered/Resolved]
  - Vision blurred [Recovering/Resolving]

NARRATIVE: CASE EVENT DATE: 20240731
